FAERS Safety Report 4384698-2 (Version None)
Quarter: 2004Q2

REPORT INFORMATION
  Report Type: 
  Country: None (occurrence: None)
  Receive Date: 20040625
  Receipt Date: 20040601
  Transmission Date: 20050107
  Serious: Yes (Other)
  Sender: FDA-Public Use
  Company Number: PHBS2004CA07296

PATIENT
  Age: 75 Year
  Sex: Female

DRUGS (5)
  1. DIOVAN [Suspect]
     Route: 048
     Dates: start: 20021001
  2. DIOVAN [Suspect]
     Dosage: 160 MG/DAY
     Route: 048
     Dates: start: 20021029
  3. DIOVAN HCT [Suspect]
     Indication: HYPERTENSION
     Dosage: VALS 160 MG / HCT 12.5 MG/DAY
     Route: 048
     Dates: start: 20031104, end: 20040513
  4. ATENOLOL [Concomitant]
     Dosage: .5 TABLET, UNK
     Route: 048
  5. ATACAND [Concomitant]
     Dosage: 16 MG, UNK

REACTIONS (3)
  - GLOSSODYNIA [None]
  - SWOLLEN TONGUE [None]
  - TONGUE DISORDER [None]
